FAERS Safety Report 5926192-0 (Version None)
Quarter: 2008Q4

REPORT INFORMATION
  Report Type: 
  Country: None (occurrence: None)
  Receive Date: 20081017
  Receipt Date: 20081002
  Transmission Date: 20090506
  Serious: Yes (Death, Hospitalization)
  Sender: FDA-Public Use
  Company Number: 2008US002298

PATIENT
  Age: 53 Year
  Sex: Male

DRUGS (1)
  1. PROGRAF [Suspect]
     Indication: HEART TRANSPLANT
     Dosage: 1 MG, D, ORAL
     Route: 048

REACTIONS (33)
  - AORTIC ARTERIOSCLEROSIS [None]
  - ARTERIOSCLEROSIS [None]
  - BACTERAEMIA [None]
  - CARDIO-RESPIRATORY ARREST [None]
  - COMPLICATIONS OF TRANSPLANTED KIDNEY [None]
  - CORONARY ARTERY OCCLUSION [None]
  - CYST [None]
  - CYSTITIS HAEMORRHAGIC [None]
  - DISSEMINATED INTRAVASCULAR COAGULATION [None]
  - DIVERTICULAR PERFORATION [None]
  - DIVERTICULITIS [None]
  - ELECTROMECHANICAL DISSOCIATION [None]
  - HAEMODIALYSIS [None]
  - HAEMOLYSIS [None]
  - HEART RATE ABNORMAL [None]
  - HEPATIC CONGESTION [None]
  - HEPATIC FUNCTION ABNORMAL [None]
  - HEPATIC NECROSIS [None]
  - HEPATOMEGALY [None]
  - HYDROCELE [None]
  - ILL-DEFINED DISORDER [None]
  - LEFT VENTRICULAR HYPERTROPHY [None]
  - MULTI-ORGAN FAILURE [None]
  - MYOCARDIAL FIBROSIS [None]
  - MYOCARDIAL INFARCTION [None]
  - PANCREATITIS ACUTE [None]
  - PERITONEAL HAEMORRHAGE [None]
  - POST PROCEDURAL PULMONARY EMBOLISM [None]
  - RENAL FAILURE ACUTE [None]
  - RESPIRATORY FAILURE [None]
  - SEPSIS [None]
  - TESTICULAR ATROPHY [None]
  - THROMBOCYTOPENIA [None]
